FAERS Safety Report 26115792 (Version 3)
Quarter: 2025Q4

REPORT INFORMATION
  Report Type: Spontaneous
  Country: CA (occurrence: CA)
  Receive Date: 20251203
  Receipt Date: 20251226
  Transmission Date: 20260117
  Serious: Yes (Hospitalization, Other)
  Sender: KARYOPHARM THERAPEUTICS
  Company Number: CA-KARYOPHARM-2025KPT100038

PATIENT

DRUGS (12)
  1. SELINEXOR [Suspect]
     Active Substance: SELINEXOR
     Indication: Plasma cell myeloma
     Dosage: 4 DOSAGE FORM EVERY ONE WEEK
     Route: 048
     Dates: start: 20250317, end: 202504
  2. SELINEXOR [Suspect]
     Active Substance: SELINEXOR
     Dosage: 80 MILLIGRAMS EVERY 1 WEEK
     Route: 048
     Dates: start: 2025, end: 202505
  3. SELINEXOR [Suspect]
     Active Substance: SELINEXOR
     Dosage: 80 MILLIGRAMS EVERY 1 WEEK
     Route: 048
     Dates: start: 2025, end: 2025
  4. SELINEXOR [Suspect]
     Active Substance: SELINEXOR
     Dosage: 80 MILLIGRAMS EVERY 1 WEEK
     Route: 048
     Dates: start: 202508, end: 2025
  5. SELINEXOR [Suspect]
     Active Substance: SELINEXOR
     Dosage: 60 MILLIGRAM(S) EVERY 1 WEEK
     Route: 048
     Dates: start: 2025, end: 2025
  6. SELINEXOR [Suspect]
     Active Substance: SELINEXOR
     Dosage: 60 MILLIGRAM(S) EVERY 1 WEEK
     Route: 048
     Dates: start: 202510, end: 202511
  7. SELINEXOR [Suspect]
     Active Substance: SELINEXOR
     Dosage: 60 MILLIGRAM(S) EVERY 1 WEEK
     Route: 048
     Dates: start: 2025, end: 202512
  8. DEXAMETHASONE [Concomitant]
     Active Substance: DEXAMETHASONE
     Dosage: 40 MG
  9. DEXAMETHASONE [Concomitant]
     Active Substance: DEXAMETHASONE
     Dosage: 20 MG
  10. DEXAMETHASONE [Concomitant]
     Active Substance: DEXAMETHASONE
     Dosage: 10 MG
  11. DEXAMETHASONE [Concomitant]
     Active Substance: DEXAMETHASONE
     Dosage: 5 MG
  12. BORTEZOMIB [Concomitant]
     Active Substance: BORTEZOMIB

REACTIONS (15)
  - Plasma cell myeloma [Unknown]
  - Lymphoma [Unknown]
  - Insomnia [Unknown]
  - Heart rate increased [Recovering/Resolving]
  - Euphoric mood [Unknown]
  - Renal disorder [Unknown]
  - Conversion disorder [Recovering/Resolving]
  - Bone disorder [Unknown]
  - Vomiting [Unknown]
  - Weight decreased [Not Recovered/Not Resolved]
  - Appetite disorder [Unknown]
  - Nausea [Recovered/Resolved]
  - Headache [Unknown]
  - Haemoglobin decreased [Recovering/Resolving]
  - Treatment delayed [Unknown]

NARRATIVE: CASE EVENT DATE: 20250101
